FAERS Safety Report 13290094 (Version 1)
Quarter: 2017Q1

REPORT INFORMATION
  Report Type: Spontaneous
  Country: CA (occurrence: CA)
  Receive Date: 20170303
  Receipt Date: 20170303
  Transmission Date: 20170428
  Serious: Yes (Hospitalization)
  Sender: FDA-Public Use
  Company Number: CA-TEVA-745432ACC

PATIENT
  Age: 8 Year
  Sex: Male
  Weight: 29.96 kg

DRUGS (6)
  1. ACT SERTRALINE [Suspect]
     Active Substance: SERTRALINE HYDROCHLORIDE
     Dosage: 25 MILLIGRAM DAILY;
     Route: 048
  2. TEVA-SERTRALINE [Suspect]
     Active Substance: SERTRALINE HYDROCHLORIDE
     Route: 048
  3. ADDERALL XR [Concomitant]
     Active Substance: AMPHETAMINE ASPARTATE\AMPHETAMINE SULFATE\DEXTROAMPHETAMINE SACCHARATE\DEXTROAMPHETAMINE SULFATE
  4. ACT SERTRALINE [Suspect]
     Active Substance: SERTRALINE HYDROCHLORIDE
     Indication: OBSESSIVE-COMPULSIVE DISORDER
     Dosage: 50 MILLIGRAM DAILY;
     Route: 048
  5. ABILIFY [Concomitant]
     Active Substance: ARIPIPRAZOLE
  6. RISPERIDONE. [Concomitant]
     Active Substance: RISPERIDONE

REACTIONS (9)
  - Agitation [Unknown]
  - Affect lability [Unknown]
  - Anger [Unknown]
  - Tic [Unknown]
  - Aggression [Unknown]
  - Anxiety [Unknown]
  - Chest pain [Unknown]
  - Dyskinesia [Unknown]
  - Paraesthesia [Unknown]
